FAERS Safety Report 11475589 (Version 2)
Quarter: 2015Q4

REPORT INFORMATION
  Report Type: Spontaneous
  Country: US (occurrence: US)
  Receive Date: 20150909
  Receipt Date: 20151009
  Transmission Date: 20160304
  Serious: No
  Sender: FDA-Public Use
  Company Number: US-ACTELION PHARMACEUTICALS US, INC.-A-US2015-121017

PATIENT
  Age: 71 Year
  Sex: Female

DRUGS (8)
  1. CALCIUM + VITAMIN D [Concomitant]
     Active Substance: CALCIUM\VITAMIN D
  2. CLOBETASOL [Concomitant]
     Active Substance: CLOBETASOL
  3. VITAMIN C [Concomitant]
     Active Substance: ASCORBIC ACID
  4. CELEXA [Concomitant]
     Active Substance: CITALOPRAM HYDROBROMIDE
  5. HYDROCORTISONE. [Concomitant]
     Active Substance: HYDROCORTISONE
  6. LEVOTHYROXINE SODIUM. [Concomitant]
     Active Substance: LEVOTHYROXINE SODIUM
  7. TARGRETIN [Concomitant]
     Active Substance: BEXAROTENE
  8. VALCHLOR [Suspect]
     Active Substance: MECHLORETHAMINE
     Indication: MYCOSIS FUNGOIDES
     Dosage: UNK UNK, QD MONDAY, WEDNESDAY, FRIDAY
     Route: 061
     Dates: start: 20150407

REACTIONS (4)
  - Application site pain [Unknown]
  - Dermatitis allergic [Unknown]
  - Application site pruritus [Unknown]
  - Application site erythema [Unknown]
